FAERS Safety Report 22029114 (Version 2)
Quarter: 2023Q1

REPORT INFORMATION
  Report Type: Spontaneous
  Country: DE (occurrence: DE)
  Receive Date: 20230223
  Receipt Date: 20230309
  Transmission Date: 20230417
  Serious: Yes (Hospitalization, Other)
  Sender: FDA-Public Use
  Company Number: DE-TEVA-2023-DE-2858493

PATIENT
  Age: 34 Year
  Sex: Male

DRUGS (6)
  1. TACROLIMUS [Suspect]
     Active Substance: TACROLIMUS
     Indication: Immunosuppressant drug therapy
     Route: 065
  2. MYCOPHENOLATE MOFETIL [Suspect]
     Active Substance: MYCOPHENOLATE MOFETIL
     Indication: Immunosuppressant drug therapy
     Route: 065
  3. PREDNISONE [Suspect]
     Active Substance: PREDNISONE
     Indication: Immunosuppressant drug therapy
     Route: 065
  4. RITUXIMAB [Suspect]
     Active Substance: RITUXIMAB
     Indication: Immunosuppressant drug therapy
     Route: 065
  5. PIPERACILLIN SODIUM\TAZOBACTAM SODIUM [Concomitant]
     Active Substance: PIPERACILLIN SODIUM\TAZOBACTAM SODIUM
     Indication: Superinfection bacterial
     Route: 065
  6. CLARITHROMYCIN [Concomitant]
     Active Substance: CLARITHROMYCIN
     Indication: Superinfection bacterial
     Route: 065

REACTIONS (4)
  - COVID-19 [Recovering/Resolving]
  - B-lymphocyte count decreased [Unknown]
  - COVID-19 pneumonia [Recovering/Resolving]
  - Superinfection bacterial [Recovering/Resolving]
